FAERS Safety Report 19019412 (Version 1)
Quarter: 2021Q1

REPORT INFORMATION
  Report Type: Spontaneous
  Country: US (occurrence: US)
  Receive Date: 20210317
  Receipt Date: 20210317
  Transmission Date: 20210420
  Serious: No
  Sender: FDA-Public Use
  Company Number: US-ASTRAZENECA-2021A123178

PATIENT
  Sex: Male
  Weight: 84.8 kg

DRUGS (5)
  1. FLOMAX [Concomitant]
     Active Substance: TAMSULOSIN HYDROCHLORIDE
     Indication: MICTURITION URGENCY
  2. METFORMIN [Concomitant]
     Active Substance: METFORMIN HYDROCHLORIDE
     Dosage: 1850 MG A DAY, THIS WAS REDUCED TO 500 MG A DAY
  3. BYDUREON BCISE [Suspect]
     Active Substance: EXENATIDE
     Indication: BLOOD GLUCOSE DECREASED
     Route: 065
  4. BYDUREON [Suspect]
     Active Substance: EXENATIDE
     Indication: BLOOD GLUCOSE DECREASED
     Route: 065
  5. COVID 19 SHOT [Concomitant]
     Indication: ALLERGY TO VACCINE
     Dates: start: 20210304

REACTIONS (11)
  - Injection site mass [Unknown]
  - Constipation [Recovered/Resolved]
  - Blood glucose increased [Recovering/Resolving]
  - Device issue [Unknown]
  - Injection site extravasation [Unknown]
  - Injection site pain [Unknown]
  - Abdominal discomfort [Recovered/Resolved]
  - Vomiting [Unknown]
  - Injection site haemorrhage [Unknown]
  - Wrong technique in device usage process [Unknown]
  - Skin atrophy [Unknown]
